FAERS Safety Report 7133197-3 (Version None)
Quarter: 2010Q4

REPORT INFORMATION
  Report Type: 
  Country: None (occurrence: None)
  Receive Date: 20101117
  Receipt Date: 20101102
  Transmission Date: 20110411
  Serious: Yes (Other)
  Sender: FDA-Public Use
  Company Number: 019204

PATIENT
  Sex: Male

DRUGS (2)
  1. CIMZIA [Suspect]
     Indication: RHEUMATOID ARTHRITIS
     Dosage: 200 MG , SUBCUTANEOUS
     Route: 058
     Dates: start: 20100701
  2. ARAVA [Concomitant]

REACTIONS (2)
  - HERPES ZOSTER [None]
  - HERPES ZOSTER OPHTHALMIC [None]
